FAERS Safety Report 14035458 (Version 1)
Quarter: 2017Q4

REPORT INFORMATION
  Report Type: Report from Study
  Country: AU (occurrence: AU)
  Receive Date: 20171003
  Receipt Date: 20171003
  Transmission Date: 20180321
  Serious: Yes (Other)
  Sender: FDA-Public Use
  Company Number: AU-SA-2017SA116246

PATIENT
  Age: 80 Year
  Sex: Female

DRUGS (2)
  1. JARDIANCE [Suspect]
     Active Substance: EMPAGLIFLOZIN
     Route: 065
  2. LANTUS [Suspect]
     Active Substance: INSULIN GLARGINE
     Indication: TYPE 2 DIABETES MELLITUS
     Route: 051

REACTIONS (6)
  - Injection site haemorrhage [Unknown]
  - Basal cell carcinoma [Unknown]
  - Blood glucose increased [Unknown]
  - Surgery [Unknown]
  - Pain in extremity [Unknown]
  - Hunger [Unknown]
